FAERS Safety Report 24677740 (Version 3)
Quarter: 2025Q1

REPORT INFORMATION
  Report Type: Report from Study
  Country: BE (occurrence: BE)
  Receive Date: 20241129
  Receipt Date: 20250306
  Transmission Date: 20250409
  Serious: Yes (Other)
  Sender: AMGEN
  Company Number: BE-Vifor (International) Inc.-VIT-2024-10478

PATIENT
  Age: 77 Year
  Sex: Female
  Weight: 69 kg

DRUGS (10)
  1. AVACOPAN [Suspect]
     Active Substance: AVACOPAN
     Indication: Anti-neutrophil cytoplasmic antibody positive vasculitis
     Dosage: 10 MG 2X30 MG DAILY
     Route: 048
     Dates: start: 20240927, end: 20241107
  2. ASPIRIN [Concomitant]
     Active Substance: ASPIRIN
  3. SULFAMETHOXAZOLE\TRIMETHOPRIM [Concomitant]
     Active Substance: SULFAMETHOXAZOLE\TRIMETHOPRIM
  4. EZETIMIBE [Concomitant]
     Active Substance: EZETIMIBE
  5. ATORVASTATIN [Concomitant]
     Active Substance: ATORVASTATIN
  6. GLIQUIDONE [Concomitant]
     Active Substance: GLIQUIDONE
  7. LEVOTHYROXINE [Concomitant]
     Active Substance: LEVOTHYROXINE
  8. METHYLPREDNISOLONE [Concomitant]
     Active Substance: METHYLPREDNISOLONE
  9. PANTOPRAZOLE [Concomitant]
     Active Substance: PANTOPRAZOLE
  10. PIRFENIDONE [Concomitant]
     Active Substance: PIRFENIDONE

REACTIONS (4)
  - Alanine aminotransferase increased [Recovering/Resolving]
  - Hepatitis toxic [Recovering/Resolving]
  - Fatigue [Recovering/Resolving]
  - Nausea [Recovering/Resolving]

NARRATIVE: CASE EVENT DATE: 20241102
